FAERS Safety Report 19445540 (Version 4)
Quarter: 2021Q3

REPORT INFORMATION
  Report Type: Spontaneous
  Country: NL (occurrence: NL)
  Receive Date: 20210622
  Receipt Date: 20210717
  Transmission Date: 20211014
  Serious: Yes (Other)
  Sender: FDA-Public Use
  Company Number: NL-AUROBINDO-AUR-APL-2021-025856

PATIENT
  Sex: Male

DRUGS (5)
  1. STIBIUM METALLICUM PRAEPARATUM D6 [Concomitant]
     Indication: CONFUSIONAL STATE
     Dosage: UNK, WHEN NEEDED
     Route: 065
  2. METOPROLOL. [Concomitant]
     Active Substance: METOPROLOL
     Indication: PRODUCT USED FOR UNKNOWN INDICATION
     Dosage: 50 MILLIGRAM
     Route: 065
  3. ACETYLSALICYLIC ACID [Concomitant]
     Active Substance: ASPIRIN
     Indication: PRODUCT USED FOR UNKNOWN INDICATION
     Dosage: 80 MILLIGRAM
     Route: 065
  4. GALANTAMINE AUROBINDO RETARD 24 MG PROLONGED RELEASE CAPSULES, HARD [Suspect]
     Active Substance: GALANTAMINE HYDROBROMIDE
     Indication: DEMENTIA ALZHEIMER^S TYPE
     Dosage: 1 DOSAGE FORM, ONCE A DAY
     Route: 048
     Dates: start: 20210607
  5. CARDIODORON [Concomitant]
     Active Substance: HERBALS
     Indication: PRODUCT USED FOR UNKNOWN INDICATION
     Dosage: 20 DROP, 3 TIMES A DAY
     Route: 048

REACTIONS (5)
  - Confusional state [Unknown]
  - Aggression [Unknown]
  - Psychotic disorder [Unknown]
  - Feeding disorder [Recovered/Resolved]
  - Dementia Alzheimer^s type [Not Recovered/Not Resolved]

NARRATIVE: CASE EVENT DATE: 20210607
